FAERS Safety Report 13827441 (Version 2)
Quarter: 2018Q1

REPORT INFORMATION
  Report Type: Report from Study
  Country: GB (occurrence: GB)
  Receive Date: 20170802
  Receipt Date: 20180206
  Transmission Date: 20180508
  Serious: No
  Sender: FDA-Public Use
  Company Number: GB-TAKEDA-2017TUS015682

PATIENT
  Sex: Male

DRUGS (9)
  1. VEDOLIZUMAB [Suspect]
     Active Substance: VEDOLIZUMAB
     Indication: PRODUCT USED FOR UNKNOWN INDICATION
     Dosage: UNK
     Route: 042
     Dates: start: 20160808
  2. LOSARTAN. [Concomitant]
     Active Substance: LOSARTAN
     Dosage: UNK
  3. BISOPROLOL [Concomitant]
     Active Substance: BISOPROLOL
     Dosage: UNK
  4. LANSOPRAZOLE. [Concomitant]
     Active Substance: LANSOPRAZOLE
     Dosage: UNK
  5. FULTIUM D3 [Concomitant]
     Active Substance: CHOLECALCIFEROL
     Dosage: UNK
  6. RIVAROXABAN [Concomitant]
     Active Substance: RIVAROXABAN
     Dosage: UNK
  7. AMLODIPINE [Concomitant]
     Active Substance: AMLODIPINE BESYLATE
     Dosage: UNK
  8. ATORVASTATIN [Concomitant]
     Active Substance: ATORVASTATIN
     Dosage: UNK
  9. METFORMIN [Concomitant]
     Active Substance: METFORMIN HYDROCHLORIDE
     Dosage: UNK

REACTIONS (2)
  - Transient ischaemic attack [Recovered/Resolved]
  - Headache [Recovered/Resolved]

NARRATIVE: CASE EVENT DATE: 20170418
